FAERS Safety Report 4686436-2 (Version None)
Quarter: 2005Q2

REPORT INFORMATION
  Report Type: 
  Country: None (occurrence: None)
  Receive Date: 20050606
  Receipt Date: 20050531
  Transmission Date: 20051028
  Serious: Yes (Hospitalization)
  Sender: FDA-Public Use
  Company Number: GXKR2005GB01156

PATIENT
  Age: 66 Year
  Sex: Female

DRUGS (7)
  1. RIFAMPICIN [Suspect]
     Indication: SEPSIS
     Dosage: 600 MG, INTRAVENOUS
     Route: 042
     Dates: start: 20041120, end: 20041120
  2. ORAMORPHY                (MORPHINE SULFATE) [Concomitant]
  3. DIAZEPAM [Concomitant]
  4. VEBLAFAXINE (VENLAFAXINE) [Concomitant]
  5. PROPRANOLOL [Concomitant]
  6. IBANDRONIC ACID       (IBANDRONIC ACID) [Concomitant]
  7. METOCLOPRAMIDE [Concomitant]

REACTIONS (1)
  - ANAPHYLACTIC REACTION [None]
